FAERS Safety Report 25705538 (Version 1)
Quarter: 2025Q3

REPORT INFORMATION
  Report Type: Spontaneous
  Country: US (occurrence: None)
  Receive Date: 20250819
  Receipt Date: 20250819
  Transmission Date: 20251021
  Serious: No
  Sender: FDA-CTU
  Company Number: None

PATIENT
  Age: 71 Year
  Sex: Female

DRUGS (1)
  1. ERYTHROMYCIN [Suspect]
     Active Substance: ERYTHROMYCIN
     Indication: Eye infection
     Dosage: FREQUENCY : 4 TIMES A DAY;?
     Route: 047
     Dates: start: 20250816, end: 20250816

REACTIONS (2)
  - Lip swelling [None]
  - Accidental exposure to product [None]

NARRATIVE: CASE EVENT DATE: 20250816
